FAERS Safety Report 24534449 (Version 2)
Quarter: 2024Q4

REPORT INFORMATION
  Report Type: Spontaneous
  Country: US (occurrence: US)
  Receive Date: 20241022
  Receipt Date: 20241028
  Transmission Date: 20250114
  Serious: Yes (Disabling, Other)
  Sender: ADVANZ PHARMA
  Company Number: US-MLMSERVICE-20241002-PI215536-00095-1

PATIENT

DRUGS (3)
  1. HYDROXYCHLOROQUINE [Suspect]
     Active Substance: HYDROXYCHLOROQUINE
     Indication: Systemic lupus erythematosus
     Dosage: 400 MG, QD ((PLAQUENIL) (DOSAGE TEXT :FOR MORE THAN 20 YEARS/TOTAL CUMULATIVE DOSAGE WAS ABOVE 2000
  2. ALLOPURINOL [Concomitant]
     Active Substance: ALLOPURINOL
     Indication: Gout
     Dosage: UNK
  3. ALLOPURINOL [Concomitant]
     Active Substance: ALLOPURINOL
     Dosage: UNK

REACTIONS (5)
  - Autoimmune retinopathy [Recovering/Resolving]
  - Optic neuropathy [Recovering/Resolving]
  - Cystoid macular oedema [Recovered/Resolved]
  - Maculopathy [Recovering/Resolving]
  - Overdose [Unknown]
